FAERS Safety Report 25700594 (Version 1)
Quarter: 2025Q3

REPORT INFORMATION
  Report Type: Spontaneous
  Country: US (occurrence: US)
  Receive Date: 20250819
  Receipt Date: 20250819
  Transmission Date: 20251021
  Serious: Yes (Life-Threatening, Hospitalization)
  Sender: ASCENT PHARMACEUTICALS INC
  Company Number: US-ASCENT-2025ASLIT00177

PATIENT
  Age: 52 Year
  Sex: Female

DRUGS (4)
  1. DRONABINOL [Suspect]
     Active Substance: DRONABINOL
     Indication: Product used for unknown indication
     Route: 065
  2. AZATHIOPRINE [Concomitant]
     Active Substance: AZATHIOPRINE
     Indication: Product used for unknown indication
     Route: 065
  3. PREDNISONE [Concomitant]
     Active Substance: PREDNISONE
     Route: 065
  4. PYRIDOSTIGMINE [Concomitant]
     Active Substance: PYRIDOSTIGMINE
     Indication: Product used for unknown indication
     Route: 065

REACTIONS (3)
  - Agitation [Recovered/Resolved]
  - Aggression [Recovered/Resolved]
  - Intentional product misuse [Unknown]
